FAERS Safety Report 23867735 (Version 3)
Quarter: 2024Q4

REPORT INFORMATION
  Report Type: Report from Study
  Country: JP (occurrence: JP)
  Receive Date: 20240517
  Receipt Date: 20241010
  Transmission Date: 20250114
  Serious: Yes (Other)
  Sender: PFIZER
  Company Number: JP-PFIZER INC-202300302506

PATIENT
  Age: 24 Day
  Sex: Male
  Weight: 2.6 kg

DRUGS (16)
  1. SIROLIMUS [Suspect]
     Active Substance: SIROLIMUS
     Indication: Lymphatic malformation
     Dosage: 0.05 MG, DAILY
     Route: 048
     Dates: start: 20220323, end: 20220411
  2. SIROLIMUS [Suspect]
     Active Substance: SIROLIMUS
     Dosage: 0.08 MG, DAILY
     Route: 048
     Dates: start: 20220412, end: 20220524
  3. SIROLIMUS [Suspect]
     Active Substance: SIROLIMUS
     Dosage: 0.1 MG, DAILY
     Route: 048
     Dates: start: 20220525, end: 20220726
  4. SIROLIMUS [Suspect]
     Active Substance: SIROLIMUS
     Dosage: 0.15 MG, DAILY
     Route: 048
     Dates: start: 20220727, end: 20220823
  5. SIROLIMUS [Suspect]
     Active Substance: SIROLIMUS
     Dosage: 0.2 MG, DAILY
     Route: 048
     Dates: start: 20220824, end: 20220920
  6. SIROLIMUS [Suspect]
     Active Substance: SIROLIMUS
     Dosage: 0.3 MG, DAILY
     Route: 048
     Dates: start: 20220921, end: 20230102
  7. SIROLIMUS [Suspect]
     Active Substance: SIROLIMUS
     Dosage: 0.3 MG, DAILY
     Route: 048
     Dates: start: 20230111, end: 20230122
  8. SIROLIMUS [Suspect]
     Active Substance: SIROLIMUS
     Dosage: 0.4 MG, DAILY
     Route: 048
     Dates: start: 20230123, end: 20230411
  9. SIROLIMUS [Suspect]
     Active Substance: SIROLIMUS
     Dosage: 0.3 MG, DAILY
     Route: 048
     Dates: start: 20230706, end: 20230906
  10. SIROLIMUS [Suspect]
     Active Substance: SIROLIMUS
     Dosage: 0.4 MG, DAILY
     Route: 048
     Dates: start: 20230914, end: 20231108
  11. SIROLIMUS [Suspect]
     Active Substance: SIROLIMUS
     Dosage: 0.6 MG, DAILY
     Route: 048
     Dates: start: 20231109, end: 20240117
  12. SIROLIMUS [Suspect]
     Active Substance: SIROLIMUS
     Dosage: 0.5 MG, DAILY
     Route: 048
     Dates: start: 20240214
  13. MENATETRENONE [Concomitant]
     Active Substance: MENATETRENONE
     Indication: Prophylaxis
     Dosage: UNK
     Route: 048
     Dates: start: 20220329, end: 20220610
  14. AMPICILLIN SODIUM\SULBACTAM SODIUM [Concomitant]
     Active Substance: AMPICILLIN SODIUM\SULBACTAM SODIUM
     Indication: Prophylaxis
     Dosage: UNK
     Route: 065
     Dates: start: 20220408, end: 20220416
  15. FERRIC PYROPHOSPHATE [Concomitant]
     Active Substance: FERRIC PYROPHOSPHATE
     Indication: Prophylaxis
     Dosage: UNK
     Route: 048
     Dates: start: 20220509, end: 20230129
  16. MIYA-BM [Concomitant]
     Active Substance: CLOSTRIDIUM BUTYRICUM SPORES STRAIN M-55
     Indication: Prophylaxis
     Dosage: UNK
     Route: 048
     Dates: start: 20230910

REACTIONS (5)
  - Fever neonatal [Recovering/Resolving]
  - Infection [Recovering/Resolving]
  - Pyrexia [Recovering/Resolving]
  - Pyrexia [Recovered/Resolved]
  - Infantile diarrhoea [Recovered/Resolved]

NARRATIVE: CASE EVENT DATE: 20220408
